FAERS Safety Report 7224163-8 (Version None)
Quarter: 2011Q1

REPORT INFORMATION
  Report Type: 
  Country: None (occurrence: None)
  Receive Date: 20110106
  Receipt Date: 20110106
  Transmission Date: 20110831
  Serious: No
  Sender: FDA-Public Use
  Company Number: None

PATIENT
  Age: 45 Year
  Sex: Female

DRUGS (1)
  1. NUCYNTA [Suspect]
     Indication: NECK PAIN
     Dosage: 50 MG 1-2 Q4HRS PO
     Route: 048
     Dates: start: 20100909, end: 20100916

REACTIONS (9)
  - GLOSSITIS [None]
  - TONGUE DISORDER [None]
  - SWOLLEN TONGUE [None]
  - PHARYNGEAL HYPOAESTHESIA [None]
  - DYSPHAGIA [None]
  - DYSPNOEA [None]
  - AGEUSIA [None]
  - HYPOAESTHESIA [None]
  - PARAESTHESIA [None]
